FAERS Safety Report 20606301 (Version 2)
Quarter: 2025Q2

REPORT INFORMATION
  Report Type: Spontaneous
  Country: US (occurrence: US)
  Receive Date: 20220317
  Receipt Date: 20250424
  Transmission Date: 20250716
  Serious: Yes (Other)
  Sender: AUROBINDO
  Company Number: US-MYLANLABS-2022M1019891

PATIENT
  Age: 16 Year
  Sex: Female

DRUGS (55)
  1. HYDROXYCHLOROQUINE [Suspect]
     Active Substance: HYDROXYCHLOROQUINE
     Indication: Cat scratch disease
     Route: 048
  2. HYDROXYCHLOROQUINE [Suspect]
     Active Substance: HYDROXYCHLOROQUINE
     Indication: Babesiosis
  3. KETOTIFEN [Suspect]
     Active Substance: KETOTIFEN
     Indication: Mast cell activation syndrome
     Route: 065
  4. KETOTIFEN [Suspect]
     Active Substance: KETOTIFEN
     Route: 065
  5. AZITHROMYCIN [Suspect]
     Active Substance: AZITHROMYCIN
     Indication: Bartonellosis
     Route: 065
  6. AZITHROMYCIN [Suspect]
     Active Substance: AZITHROMYCIN
     Indication: Borrelia infection
  7. MONTELUKAST [Suspect]
     Active Substance: MONTELUKAST
     Indication: Mast cell activation syndrome
     Route: 065
  8. IMATINIB [Suspect]
     Active Substance: IMATINIB
     Indication: Mast cell activation syndrome
     Route: 065
  9. CETIRIZINE [Suspect]
     Active Substance: CETIRIZINE HYDROCHLORIDE
     Indication: Mast cell activation syndrome
     Route: 065
  10. CETIRIZINE [Suspect]
     Active Substance: CETIRIZINE HYDROCHLORIDE
     Indication: Antiallergic therapy
  11. RANITIDINE [Suspect]
     Active Substance: RANITIDINE
     Indication: Mast cell activation syndrome
     Route: 065
  12. RANITIDINE [Suspect]
     Active Substance: RANITIDINE
     Indication: Antiallergic therapy
  13. IMATINIB [Suspect]
     Active Substance: IMATINIB
     Indication: Mast cell activation syndrome
     Route: 065
  14. CROMOLYN SODIUM [Suspect]
     Active Substance: CROMOLYN SODIUM
     Indication: Mast cell activation syndrome
     Route: 048
  15. CELECOXIB [Suspect]
     Active Substance: CELECOXIB
     Indication: Mast cell activation syndrome
     Route: 065
  16. CELECOXIB [Suspect]
     Active Substance: CELECOXIB
     Route: 065
  17. SULFAMETHOXAZOLE\TRIMETHOPRIM [Suspect]
     Active Substance: SULFAMETHOXAZOLE\TRIMETHOPRIM
     Indication: Cat scratch disease
     Route: 048
  18. SULFAMETHOXAZOLE\TRIMETHOPRIM [Suspect]
     Active Substance: SULFAMETHOXAZOLE\TRIMETHOPRIM
     Indication: Babesiosis
  19. CEFTRIAXONE [Concomitant]
     Active Substance: CEFTRIAXONE
     Indication: Lyme disease
     Route: 042
  20. CEFTRIAXONE [Concomitant]
     Active Substance: CEFTRIAXONE
     Indication: Bartonellosis
     Route: 042
  21. CEFTRIAXONE [Concomitant]
     Active Substance: CEFTRIAXONE
     Indication: Borrelia infection
  22. CEFUROXIME [Suspect]
     Active Substance: CEFUROXIME
     Indication: Bartonellosis
     Route: 065
  23. CEFUROXIME [Suspect]
     Active Substance: CEFUROXIME
     Indication: Borrelia infection
  24. PROPRANOLOL [Concomitant]
     Active Substance: PROPRANOLOL HYDROCHLORIDE
     Indication: Postural orthostatic tachycardia syndrome
     Route: 065
  25. ATOVAQUONE [Concomitant]
     Active Substance: ATOVAQUONE
     Indication: Bartonellosis
     Route: 048
  26. ATOVAQUONE [Concomitant]
     Active Substance: ATOVAQUONE
     Indication: Borrelia infection
  27. PROGUANIL [Concomitant]
     Active Substance: PROGUANIL
     Indication: Bartonellosis
     Route: 048
  28. PROGUANIL [Concomitant]
     Active Substance: PROGUANIL
     Indication: Borrelia infection
  29. NORTRIPTYLINE [Concomitant]
     Active Substance: NORTRIPTYLINE
     Indication: Constipation
     Route: 065
  30. BUPROPION [Concomitant]
     Active Substance: BUPROPION
     Indication: Product used for unknown indication
     Route: 065
  31. FEXOFENADINE [Suspect]
     Active Substance: FEXOFENADINE HYDROCHLORIDE
     Indication: Mast cell activation syndrome
     Route: 065
  32. LEVOCETIRIZINE [Suspect]
     Active Substance: LEVOCETIRIZINE
     Indication: Mast cell activation syndrome
     Route: 065
  33. NALTREXONE [Suspect]
     Active Substance: NALTREXONE
     Indication: Mast cell activation syndrome
     Route: 065
  34. HYDROXYZINE [Suspect]
     Active Substance: HYDROXYZINE HYDROCHLORIDE
     Indication: Mast cell activation syndrome
     Route: 065
  35. Immunoglobulin [Concomitant]
     Indication: Chronic inflammatory demyelinating polyradiculoneuropathy
     Route: 042
  36. PROGESTERONE [Concomitant]
     Active Substance: PROGESTERONE
     Indication: Mast cell activation syndrome
     Route: 048
  37. PROGESTERONE [Concomitant]
     Active Substance: PROGESTERONE
     Route: 048
  38. VILAZODONE [Suspect]
     Active Substance: VILAZODONE
     Indication: Obsessive-compulsive disorder
     Route: 065
  39. LURASIDONE [Suspect]
     Active Substance: LURASIDONE
     Indication: Obsessive-compulsive disorder
     Route: 065
  40. PRUCALOPRIDE [Concomitant]
     Active Substance: PRUCALOPRIDE
     Indication: Mast cell activation syndrome
     Route: 065
  41. LAMOTRIGINE [Suspect]
     Active Substance: LAMOTRIGINE
     Indication: Obsessive-compulsive disorder
     Route: 065
  42. CLARITHROMYCIN [Suspect]
     Active Substance: CLARITHROMYCIN
     Indication: Cat scratch disease
     Route: 048
  43. CLARITHROMYCIN [Suspect]
     Active Substance: CLARITHROMYCIN
     Indication: Babesiosis
  44. MINOCYCLINE HYDROCHLORIDE [Suspect]
     Active Substance: MINOCYCLINE HYDROCHLORIDE
     Indication: Cat scratch disease
     Route: 048
  45. MINOCYCLINE HYDROCHLORIDE [Suspect]
     Active Substance: MINOCYCLINE HYDROCHLORIDE
     Indication: Babesiosis
  46. FAMOTIDINE [Suspect]
     Active Substance: FAMOTIDINE
     Indication: Mast cell activation syndrome
     Route: 065
  47. FAMOTIDINE [Suspect]
     Active Substance: FAMOTIDINE
     Indication: Antiallergic therapy
  48. RIFAMPIN [Suspect]
     Active Substance: RIFAMPIN
     Indication: Cat scratch disease
     Route: 048
  49. RIFAMPIN [Suspect]
     Active Substance: RIFAMPIN
     Indication: Babesiosis
  50. LORATADINE [Suspect]
     Active Substance: LORATADINE
     Indication: Mast cell activation syndrome
     Route: 065
  51. LORATADINE [Suspect]
     Active Substance: LORATADINE
     Indication: Antiallergic therapy
  52. DOXYCYCLINE [Suspect]
     Active Substance: DOXYCYCLINE
     Indication: Bartonellosis
     Route: 065
  53. DOXYCYCLINE [Suspect]
     Active Substance: DOXYCYCLINE
     Indication: Borrelia infection
  54. DIPHENHYDRAMINE [Suspect]
     Active Substance: DIPHENHYDRAMINE
     Indication: Mast cell activation syndrome
     Route: 065
  55. DIPHENHYDRAMINE [Suspect]
     Active Substance: DIPHENHYDRAMINE
     Indication: Antiallergic therapy

REACTIONS (7)
  - Cerebral disorder [Unknown]
  - Brain fog [Unknown]
  - Condition aggravated [Unknown]
  - Obsessive-compulsive disorder [Unknown]
  - Depression [Unknown]
  - Drug ineffective [Unknown]
  - Off label use [Unknown]
